FAERS Safety Report 8982200 (Version 1)
Quarter: 2012Q4

REPORT INFORMATION
  Report Type: 
  Country: US (occurrence: US)
  Receive Date: 20121222
  Receipt Date: 20121222
  Transmission Date: 20130627
  Serious: Yes (Hospitalization)
  Sender: FDA-Public Use
  Company Number: US-SANOFI-AVENTIS-2012SA091551

PATIENT
  Age: 60 Year
  Sex: Female
  Weight: 100 kg

DRUGS (13)
  1. PLAQUENIL [Suspect]
     Route: 065
  2. HUMIRA [Suspect]
     Dosage: once in two weeks
     Route: 058
     Dates: start: 201101
  3. METHOTREXATE [Suspect]
     Route: 065
  4. ORAL ANTIDIABETICS [Concomitant]
  5. VICTOZA [Concomitant]
  6. VESICARE [Concomitant]
  7. GLIPIZIDE [Concomitant]
  8. ANASTROZOLE [Concomitant]
  9. ASA [Concomitant]
  10. LEVOTHYROXINE [Concomitant]
  11. LISINOPRIL [Concomitant]
  12. FOLIC ACID [Concomitant]
  13. CALCIFEROL [Concomitant]

REACTIONS (11)
  - Immune system disorder [Unknown]
  - Fall [Unknown]
  - Joint injury [Unknown]
  - Gastrointestinal infection [Unknown]
  - Spinal cord infection [Unknown]
  - Erythema [Unknown]
  - Local swelling [Unknown]
  - Pain [Unknown]
  - Gait disturbance [Unknown]
  - Arthropod bite [Unknown]
  - Dyspnoea exertional [Unknown]
